FAERS Safety Report 4908283-6 (Version None)
Quarter: 2006Q1

REPORT INFORMATION
  Report Type: 
  Country: None (occurrence: None)
  Receive Date: 20060210
  Receipt Date: 20060201
  Transmission Date: 20060701
  Serious: Yes (Congenital Anomaly)
  Sender: FDA-Public Use
  Company Number: DE-JNJFOC-20060200643

PATIENT

DRUGS (2)
  1. TOPAMAX [Suspect]
     Indication: DRUG USE FOR UNKNOWN INDICATION
  2. LAMICTAL [Suspect]
     Indication: DRUG USE FOR UNKNOWN INDICATION

REACTIONS (6)
  - ANAL ATRESIA [None]
  - HEART DISEASE CONGENITAL [None]
  - KIDNEY MALFORMATION [None]
  - LIMB MALFORMATION [None]
  - SPINE MALFORMATION [None]
  - TRACHEO-OESOPHAGEAL FISTULA [None]
